FAERS Safety Report 4672666-2 (Version None)
Quarter: 2005Q2

REPORT INFORMATION
  Report Type: 
  Country: None (occurrence: None)
  Receive Date: 20050524
  Receipt Date: 20050218
  Transmission Date: 20051028
  Serious: Yes (Hospitalization, Disabling)
  Sender: FDA-Public Use
  Company Number: US-MERCK-0502USA02696

PATIENT
  Age: 76 Year
  Sex: Female
  Weight: 72 kg

DRUGS (4)
  1. VIOXX [Suspect]
     Indication: ARTHRITIS
     Route: 048
     Dates: start: 19990101, end: 20040901
  2. DARVOCET-N 100 [Concomitant]
     Route: 065
  3. PREMARIN [Concomitant]
     Route: 065
  4. ATENOLOL [Concomitant]
     Route: 065

REACTIONS (22)
  - ANGIOPATHY [None]
  - BLOOD CHOLESTEROL INCREASED [None]
  - CEREBROVASCULAR ACCIDENT [None]
  - DIABETES MELLITUS NON-INSULIN-DEPENDENT [None]
  - DRUG HYPERSENSITIVITY [None]
  - EMOTIONAL DISTRESS [None]
  - FLANK PAIN [None]
  - HAEMATOCHEZIA [None]
  - HYPERTENSION [None]
  - HYPOKALAEMIA [None]
  - ISCHAEMIC STROKE [None]
  - LACUNAR INFARCTION [None]
  - MENTAL IMPAIRMENT [None]
  - NECK PAIN [None]
  - NEPHROLITHIASIS [None]
  - PAIN [None]
  - PELVIC MASS [None]
  - ROTATOR CUFF SYNDROME [None]
  - SINUS DISORDER [None]
  - SYNOVITIS [None]
  - THROMBOSED VARICOSE VEIN [None]
  - TRANSIENT ISCHAEMIC ATTACK [None]
